FAERS Safety Report 4326581-4 (Version None)
Quarter: 2004Q1

REPORT INFORMATION
  Report Type: 
  Country: None (occurrence: None)
  Receive Date: 20040330
  Receipt Date: 20040318
  Transmission Date: 20041129
  Serious: Yes (Other)
  Sender: FDA-Public Use
  Company Number: PHNU2004DE01270

PATIENT
  Sex: Female

DRUGS (2)
  1. PROVAS [Suspect]
     Indication: HYPERTENSION
     Route: 048
  2. VISKEN [Concomitant]
     Indication: HYPERTENSION
     Dosage: 7.5 MG, QD
     Route: 048

REACTIONS (3)
  - DIABETES MELLITUS [None]
  - PSORIASIS [None]
  - WEIGHT INCREASED [None]
